FAERS Safety Report 9813105 (Version 3)
Quarter: 2014Q2

REPORT INFORMATION
  Report Type: Spontaneous
  Country: US (occurrence: US)
  Receive Date: 20140113
  Receipt Date: 20140404
  Transmission Date: 20141212
  Serious: Yes (Hospitalization)
  Sender: FDA-Public Use
  Company Number: US-009507513-1205USA03382

PATIENT
  Sex: Male

DRUGS (9)
  1. PROPECIA [Suspect]
     Indication: ANDROGENETIC ALOPECIA
     Dosage: 1 MG, QD
     Route: 048
     Dates: start: 20031111, end: 20050216
  2. PROPECIA [Suspect]
     Indication: ALOPECIA
     Dosage: 1 MG, QD
     Route: 048
     Dates: start: 20050331, end: 20051019
  3. PROPECIA [Suspect]
     Dosage: 1 MG, QD
     Route: 048
     Dates: start: 20060201, end: 20080405
  4. PROPECIA [Suspect]
     Dosage: 1 MG, QD
     Route: 048
     Dates: start: 20060201, end: 20080405
  5. PROPECIA [Suspect]
     Dosage: 1 MG QD
     Route: 048
     Dates: start: 20080612, end: 20100629
  6. PROSCAR [Suspect]
  7. RETIN-A [Concomitant]
     Indication: ACNE
     Dosage: UNK
     Route: 061
     Dates: start: 20031103
  8. DOVE [Concomitant]
     Indication: ACNE
     Dosage: UNK
     Route: 061
  9. PLEXION [Concomitant]
     Indication: ACNE
     Dosage: UNK
     Route: 061
     Dates: start: 20040202

REACTIONS (9)
  - Alopecia [Unknown]
  - Scrotal varicose veins [Unknown]
  - Laser therapy [Unknown]
  - Testicular injury [Unknown]
  - Libido disorder [Unknown]
  - Mental disorder [Unknown]
  - Cognitive disorder [Not Recovered/Not Resolved]
  - Erectile dysfunction [Not Recovered/Not Resolved]
  - Sexual dysfunction [Not Recovered/Not Resolved]
